FAERS Safety Report 7061603-1 (Version None)
Quarter: 2010Q4

REPORT INFORMATION
  Report Type: 
  Country: None (occurrence: None)
  Receive Date: 20101026
  Receipt Date: 20101020
  Transmission Date: 20110411
  Serious: Yes (Hospitalization)
  Sender: FDA-Public Use
  Company Number: DK-SANOFI-AVENTIS-2010SA064513

PATIENT
  Sex: Male

DRUGS (1)
  1. TAXOTERE [Suspect]
     Indication: BREAST CANCER MALE
     Route: 042
     Dates: start: 20080911

REACTIONS (8)
  - CONFUSIONAL STATE [None]
  - DIARRHOEA [None]
  - DISCOMFORT [None]
  - HYPOTENSION [None]
  - LYMPHOMA [None]
  - NEURALGIA [None]
  - SYNCOPE [None]
  - URINE OUTPUT DECREASED [None]
